FAERS Safety Report 9601914 (Version 2)
Quarter: 2013Q4

REPORT INFORMATION
  Report Type: Spontaneous
  Country: US (occurrence: US)
  Receive Date: 20131007
  Receipt Date: 20131101
  Transmission Date: 20140711
  Serious: No
  Sender: FDA-Public Use
  Company Number: US-JNJFOC-20131000064

PATIENT
  Age: 37 Year
  Sex: Male
  Weight: 108.86 kg

DRUGS (4)
  1. INVEGA SUSTENNA [Suspect]
     Indication: BIPOLAR I DISORDER
     Route: 030
     Dates: start: 20131021
  2. INVEGA SUSTENNA [Suspect]
     Indication: BIPOLAR I DISORDER
     Route: 030
     Dates: start: 20130924
  3. INVEGA SUSTENNA [Suspect]
     Indication: BIPOLAR I DISORDER
     Route: 030
     Dates: start: 20130917
  4. LAMOTRIGINE [Concomitant]
     Indication: AFFECT LABILITY

REACTIONS (3)
  - Injection site pain [Unknown]
  - Off label use [Unknown]
  - Burning sensation [Recovered/Resolved]
